FAERS Safety Report 5330987-4 (Version None)
Quarter: 2007Q2

REPORT INFORMATION
  Report Type: 
  Country: None (occurrence: None)
  Receive Date: 20070522
  Receipt Date: 20070517
  Transmission Date: 20071010
  Serious: Yes (Other)
  Sender: FDA-Public Use
  Company Number: US-JNJFOC-20070504663

PATIENT
  Age: 86 Year
  Sex: Female
  Weight: 81.65 kg

DRUGS (3)
  1. EXTRA STRENGTH TYLENOL [Suspect]
  2. EXTRA STRENGTH TYLENOL [Suspect]
     Indication: HEADACHE
  3. PLAVIX [Concomitant]
     Indication: ANTICOAGULANT THERAPY

REACTIONS (2)
  - CRYING [None]
  - HALLUCINATION [None]
